FAERS Safety Report 15811669 (Version 2)
Quarter: 2019Q1

REPORT INFORMATION
  Report Type: Spontaneous
  Country: US (occurrence: US)
  Receive Date: 20190111
  Receipt Date: 20190116
  Transmission Date: 20190417
  Serious: Yes (Hospitalization, Other)
  Sender: FDA-Public Use
  Company Number: US-PFIZER INC-2019013595

PATIENT
  Sex: Male

DRUGS (2)
  1. LYRICA [Suspect]
     Active Substance: PREGABALIN
     Indication: FIBROMYALGIA
     Dosage: 200 MG, UNK
  2. LYRICA [Suspect]
     Active Substance: PREGABALIN
     Indication: DIABETIC NEUROPATHY

REACTIONS (8)
  - Cystitis [Unknown]
  - Back disorder [Unknown]
  - Joint injury [Unknown]
  - Sleep apnoea syndrome [Unknown]
  - Cellulitis [Unknown]
  - Pyrexia [Unknown]
  - Fall [Unknown]
  - Rotator cuff syndrome [Unknown]
